FAERS Safety Report 12504049 (Version 9)
Quarter: 2017Q1

REPORT INFORMATION
  Report Type: Report from Study
  Country: CL (occurrence: CL)
  Receive Date: 20160628
  Receipt Date: 20170203
  Transmission Date: 20170428
  Serious: Yes (Hospitalization, Other)
  Sender: FDA-Public Use
  Company Number: CL-SA-2016SA037315

PATIENT
  Age: 35 Year
  Sex: Male

DRUGS (6)
  1. LEMTRADA [Suspect]
     Active Substance: ALEMTUZUMAB
     Indication: RELAPSING-REMITTING MULTIPLE SCLEROSIS
     Route: 041
     Dates: start: 20160405, end: 20160407
  2. ESCITALOPRAM [Concomitant]
     Active Substance: ESCITALOPRAM OXALATE
     Indication: DEPRESSION
     Route: 048
  3. LEMTRADA [Suspect]
     Active Substance: ALEMTUZUMAB
     Indication: MULTIPLE SCLEROSIS
     Route: 041
     Dates: start: 20160405, end: 20160407
  4. BACLOFEN. [Concomitant]
     Active Substance: BACLOFEN
     Indication: MUSCLE SPASTICITY
     Route: 048
  5. LEMTRADA [Suspect]
     Active Substance: ALEMTUZUMAB
     Indication: RELAPSING-REMITTING MULTIPLE SCLEROSIS
     Route: 041
     Dates: start: 20150408, end: 20150412
  6. LEMTRADA [Suspect]
     Active Substance: ALEMTUZUMAB
     Indication: MULTIPLE SCLEROSIS
     Route: 041
     Dates: start: 20150408, end: 20150412

REACTIONS (17)
  - Eye pain [Not Recovered/Not Resolved]
  - Multiple sclerosis relapse [Recovered/Resolved]
  - Varicella zoster virus infection [Recovered/Resolved]
  - Blindness unilateral [Not Recovered/Not Resolved]
  - Optic neuritis [Recovering/Resolving]
  - Eye pain [Recovering/Resolving]
  - Blood immunoglobulin G decreased [Unknown]
  - Optic neuritis [Recovered/Resolved]
  - Haematuria [Not Recovered/Not Resolved]
  - Lymphocyte count decreased [Unknown]
  - Diplopia [Recovered/Resolved]
  - Skin lesion [Recovered/Resolved]
  - B-lymphocyte count decreased [Unknown]
  - Blindness unilateral [Recovering/Resolving]
  - Pain [Recovered/Resolved]
  - CD4 lymphocytes decreased [Unknown]
  - Platelet count decreased [Recovered/Resolved]

NARRATIVE: CASE EVENT DATE: 20160218
